FAERS Safety Report 6585393-1 (Version None)
Quarter: 2010Q1

REPORT INFORMATION
  Report Type: 
  Country: None (occurrence: None)
  Receive Date: 20100217
  Receipt Date: 20100215
  Transmission Date: 20100710
  Serious: Yes (Other)
  Sender: FDA-Public Use
  Company Number: A0832046A

PATIENT
  Sex: Female

DRUGS (4)
  1. ADVAIR DISKUS 100/50 [Suspect]
     Indication: ASTHMA
     Route: 055
  2. INHALER [Concomitant]
  3. UNSPECIFIED TREATMENT [Concomitant]
  4. COUGH DROP [Concomitant]

REACTIONS (12)
  - COLLAPSE OF LUNG [None]
  - COUGH [None]
  - DYSPNOEA [None]
  - FALL [None]
  - FOOT FRACTURE [None]
  - IMPAIRED HEALING [None]
  - INHALATION THERAPY [None]
  - INSOMNIA [None]
  - MULTIPLE FRACTURES [None]
  - OVERDOSE [None]
  - UPPER LIMB FRACTURE [None]
  - WHEEZING [None]
